FAERS Safety Report 8171443-8 (Version None)
Quarter: 2012Q1

REPORT INFORMATION
  Report Type: 
  Country: None (occurrence: None)
  Receive Date: 20120228
  Receipt Date: 20120217
  Transmission Date: 20120608
  Serious: Yes (Death, Hospitalization)
  Sender: FDA-Public Use
  Company Number: US-BAXTER-2012BH003967

PATIENT
  Age: 65 Year
  Sex: Male

DRUGS (1)
  1. DIANEAL [Suspect]
     Indication: PERITONEAL DIALYSIS
     Route: 033
     Dates: start: 20110101, end: 20120214

REACTIONS (4)
  - BLOOD POTASSIUM INCREASED [None]
  - THYROID FUNCTION TEST ABNORMAL [None]
  - DEATH [None]
  - BLOOD MAGNESIUM INCREASED [None]
